FAERS Safety Report 9448978 (Version 1)
Quarter: 2013Q3

REPORT INFORMATION
  Report Type: Spontaneous
  Country: TR (occurrence: None)
  Receive Date: 20130806
  Receipt Date: 20130806
  Transmission Date: 20140515
  Serious: Yes (Hospitalization)
  Sender: FDA-Public Use
  Company Number: IPC201307-000308

PATIENT
  Age: 24 Year
  Sex: Male

DRUGS (2)
  1. METFORMIN HYDROCHLORIDE [Suspect]
  2. TELMISARTAN HYDROCHLOROTHIAZIDE [Suspect]

REACTIONS (2)
  - Alanine aminotransferase abnormal [None]
  - Intentional overdose [None]
